FAERS Safety Report 15853932 (Version 3)
Quarter: 2019Q1

REPORT INFORMATION
  Report Type: Spontaneous
  Country: US (occurrence: US)
  Receive Date: 20190122
  Receipt Date: 20190305
  Transmission Date: 20190417
  Serious: Yes (Other)
  Sender: FDA-Public Use
  Company Number: US-PFIZER INC-2019027481

PATIENT
  Sex: Male

DRUGS (1)
  1. VIAGRA [Suspect]
     Active Substance: SILDENAFIL CITRATE
     Indication: ERECTILE DYSFUNCTION
     Dosage: UNK
     Dates: start: 201901

REACTIONS (4)
  - Erection increased [Not Recovered/Not Resolved]
  - Skin discolouration [Unknown]
  - Penile pain [Unknown]
  - Penile swelling [Unknown]

NARRATIVE: CASE EVENT DATE: 201901
